FAERS Safety Report 6802557-X (Version None)
Quarter: 2010Q2

REPORT INFORMATION
  Report Type: 
  Country: None (occurrence: None)
  Receive Date: 20100629
  Receipt Date: 20080616
  Transmission Date: 20101027
  Serious: Yes (Hospitalization, Other)
  Sender: FDA-Public Use
  Company Number: US-PFIZER INC-2007037640

PATIENT
  Sex: Female

DRUGS (2)
  1. BEXTRA [Suspect]
     Indication: PAIN IN JAW
     Dates: start: 20031101
  2. BEXTRA [Suspect]
     Indication: ARTHRALGIA

REACTIONS (1)
  - CARDIOMYOPATHY [None]
